FAERS Safety Report 8498798-9 (Version None)
Quarter: 2012Q3

REPORT INFORMATION
  Report Type: 
  Country: None (occurrence: None)
  Receive Date: 20120709
  Receipt Date: 20100422
  Transmission Date: 20120928
  Serious: Yes (Death, Hospitalization, Other)
  Sender: FDA-Public Use
  Company Number: PHHY2010CA13122

PATIENT
  Sex: Female

DRUGS (2)
  1. SANDOSTATIN LAR [Suspect]
     Indication: LUNG CANCER METASTATIC
     Dosage: 20 MG, QMO
     Route: 030
     Dates: start: 20091105, end: 20100401
  2. ATIVAN [Concomitant]
     Dosage: 5 MG, TID WHEN NEEDED

REACTIONS (7)
  - DEATH [None]
  - OEDEMA PERIPHERAL [None]
  - URINARY RETENTION [None]
  - BLOOD PRESSURE DECREASED [None]
  - SOMNOLENCE [None]
  - BLOOD PRESSURE SYSTOLIC INCREASED [None]
  - OXYGEN SATURATION DECREASED [None]
